FAERS Safety Report 5450123-3 (Version None)
Quarter: 2007Q3

REPORT INFORMATION
  Report Type: 
  Country: None (occurrence: None)
  Receive Date: 20070912
  Receipt Date: 20070906
  Transmission Date: 20080115
  Serious: Yes (Other)
  Sender: FDA-Public Use
  Company Number: A0679189A

PATIENT
  Age: 58 Year

DRUGS (8)
  1. WELLBUTRIN XL [Suspect]
     Indication: DEPRESSION
     Dosage: 300MG PER DAY
     Route: 048
     Dates: start: 20070501
  2. ZYRTEC [Concomitant]
  3. SEROQUEL [Concomitant]
  4. ASPIRIN [Concomitant]
  5. TYLENOL (CAPLET) [Concomitant]
  6. NAPROXEN [Concomitant]
  7. IBUPROFEN [Concomitant]
  8. TYLENOL [Concomitant]

REACTIONS (9)
  - CEREBROVASCULAR ACCIDENT [None]
  - DRUG WITHDRAWAL SYNDROME [None]
  - FEELING ABNORMAL [None]
  - HALLUCINATION [None]
  - HEADACHE [None]
  - INSOMNIA [None]
  - MEMORY IMPAIRMENT [None]
  - MIGRAINE [None]
  - SOMNOLENCE [None]
